FAERS Safety Report 4682527-0 (Version None)
Quarter: 2005Q2

REPORT INFORMATION
  Report Type: 
  Country: None (occurrence: None)
  Receive Date: 20050602
  Receipt Date: 20050411
  Transmission Date: 20051028
  Serious: No
  Sender: FDA-Public Use
  Company Number: USA050495352

PATIENT
  Age: 37 Year
  Sex: Female

DRUGS (3)
  1. CYMBALTA [Suspect]
     Dosage: 60 MG DAY
     Dates: start: 20041201, end: 20050401
  2. WELLBUTRIN [Concomitant]
  3. DEPO-PROVERA SUSPENSION/INJ [Concomitant]

REACTIONS (5)
  - CRYING [None]
  - HEADACHE [None]
  - IRRITABILITY [None]
  - METRORRHAGIA [None]
  - MOOD SWINGS [None]
